FAERS Safety Report 6497373-5 (Version None)
Quarter: 2009Q4

REPORT INFORMATION
  Report Type: 
  Country: None (occurrence: None)
  Receive Date: 20091215
  Receipt Date: 20091104
  Transmission Date: 20100525
  Serious: No
  Sender: FDA-Public Use
  Company Number: A0813157A

PATIENT
  Age: 69 Year
  Sex: Male

DRUGS (7)
  1. AVODART [Suspect]
     Indication: BENIGN PROSTATIC HYPERPLASIA
     Dosage: .5MG PER DAY
     Route: 048
     Dates: start: 20090918, end: 20090101
  2. UNKNOWN EXTRACT [Suspect]
  3. PLAVIX [Concomitant]
  4. ATENOLOL [Concomitant]
  5. SIMVASTATIN [Concomitant]
  6. ASPIRIN [Concomitant]
  7. FOSAMAX [Concomitant]

REACTIONS (6)
  - ABASIA [None]
  - ARTHRALGIA [None]
  - DISCOMFORT [None]
  - DRUG INTERACTION [None]
  - OSTEOARTHRITIS [None]
  - TENDON PAIN [None]
